FAERS Safety Report 11607516 (Version 1)
Quarter: 2015Q3

REPORT INFORMATION
  Report Type: Spontaneous
  Country: US (occurrence: US)
  Receive Date: 20150916
  Receipt Date: 20150916
  Transmission Date: 20151125
  Serious: No
  Sender: FDA-Public Use
  Company Number: US-ELI_LILLY_AND_COMPANY-US201401002770

PATIENT
  Age: 78 Year
  Sex: Female

DRUGS (11)
  1. HUMALOG MIX75/25 [Suspect]
     Active Substance: INSULIN LISPRO
     Dosage: 20 IU, EACH EVENING
     Route: 065
     Dates: start: 2009
  2. HUMALOG MIX75/25 [Suspect]
     Active Substance: INSULIN LISPRO
     Dosage: 30 IU, EACH MORNING
     Route: 065
     Dates: start: 2009
  3. HUMALOG MIX75/25 [Suspect]
     Active Substance: INSULIN LISPRO
     Dosage: 30 IU, EACH MORNING
     Route: 065
     Dates: start: 2009
  4. HUMALOG MIX75/25 [Suspect]
     Active Substance: INSULIN LISPRO
     Dosage: 30 IU, EACH MORNING
     Route: 065
     Dates: start: 2009
  5. HUMALOG MIX75/25 [Suspect]
     Active Substance: INSULIN LISPRO
     Dosage: 20 IU, EACH EVENING
     Route: 065
     Dates: start: 2009
  6. HUMALOG MIX75/25 [Suspect]
     Active Substance: INSULIN LISPRO
     Dosage: 20 IU, EACH EVENING
     Route: 065
     Dates: start: 2009
  7. LASIX [Concomitant]
     Active Substance: FUROSEMIDE
  8. HUMALOG MIX75/25 [Suspect]
     Active Substance: INSULIN LISPRO
     Indication: TYPE 2 DIABETES MELLITUS
     Dosage: 30 IU, EACH MORNING
     Route: 065
     Dates: start: 2009
  9. HUMALOG MIX75/25 [Suspect]
     Active Substance: INSULIN LISPRO
     Dosage: 30 IU, EACH MORNING
     Route: 065
     Dates: start: 2009
  10. HUMALOG MIX75/25 [Suspect]
     Active Substance: INSULIN LISPRO
     Dosage: 20 IU, EACH EVENING
     Route: 065
     Dates: start: 2009
  11. HUMALOG MIX75/25 [Suspect]
     Active Substance: INSULIN LISPRO
     Dosage: 20 IU, EACH EVENING
     Route: 065
     Dates: start: 2009

REACTIONS (5)
  - Peripheral swelling [Unknown]
  - Drug dose omission [Unknown]
  - Memory impairment [Unknown]
  - Pollakiuria [Unknown]
  - Confusional state [Unknown]

NARRATIVE: CASE EVENT DATE: 201401
